FAERS Safety Report 4855937-6 (Version None)
Quarter: 2005Q4

REPORT INFORMATION
  Report Type: 
  Country: None (occurrence: None)
  Receive Date: 20051216
  Receipt Date: 20051213
  Transmission Date: 20060501
  Serious: Yes (Other)
  Sender: FDA-Public Use
  Company Number: AU-GLAXOSMITHKLINE-B0403825A

PATIENT
  Sex: Male

DRUGS (2)
  1. ZYBAN [Suspect]
     Indication: DRUG USE FOR UNKNOWN INDICATION
     Route: 065
  2. UNSPECIFIED MEDICATION [Concomitant]

REACTIONS (1)
  - LOSS OF CONSCIOUSNESS [None]
